FAERS Safety Report 9832079 (Version 2)
Quarter: 2014Q1

REPORT INFORMATION
  Report Type: Report from Study
  Country: DE (occurrence: DE)
  Receive Date: 20140121
  Receipt Date: 20140131
  Transmission Date: 20141002
  Serious: Yes (Death)
  Sender: FDA-Public Use
  Company Number: DE-PFIZER INC-2014014807

PATIENT
  Age: 69 Year
  Sex: Female
  Weight: 56 kg

DRUGS (32)
  1. SOMAVERT [Suspect]
     Indication: ACROMEGALY
     Dosage: 15 MG, ALTERNATE DAY, EVERY 2 DAYS
     Dates: start: 200602
  2. THEOPHYLLINE [Concomitant]
     Indication: RESPIRATORY DISORDER
     Dosage: UNK
     Dates: start: 20080902
  3. THEOPHYLLINE [Concomitant]
     Dosage: UNK
     Dates: start: 20090116
  4. THEOPHYLLINE [Concomitant]
     Dosage: UNK
     Dates: start: 20090518
  5. THEOPHYLLINE [Concomitant]
     Dosage: UNK
     Dates: start: 20090915
  6. THEOPHYLLINE [Concomitant]
     Dosage: UNK
     Dates: start: 20100308
  7. FORADIL P [Concomitant]
     Indication: RESPIRATORY DISORDER
     Dosage: UNK
     Dates: start: 20080902
  8. FORADIL P [Concomitant]
     Dosage: UNK
     Dates: start: 20090116
  9. CALCIUM 3 D [Concomitant]
     Dosage: UNK
     Dates: start: 20080902
  10. CALCIUM 3 D [Concomitant]
     Dosage: UNK
     Dates: start: 20090116
  11. CALCIUM 3 D [Concomitant]
     Dosage: UNK
     Dates: start: 20090518
  12. CALCIUM 3 D [Concomitant]
     Dosage: UNK
     Dates: start: 20090915
  13. CALCIUM 3 D [Concomitant]
     Dosage: UNK
     Dates: start: 20100308
  14. JODTHYROX [Concomitant]
     Indication: BLOOD THYROID STIMULATING HORMONE DECREASED
     Dosage: UNK
     Dates: start: 20080902
  15. JODTHYROX [Concomitant]
     Dosage: UNK
     Dates: start: 20090116
  16. JODTHYROX [Concomitant]
     Dosage: UNK
     Dates: start: 20090518
  17. JODTHYROX [Concomitant]
     Dosage: UNK
     Dates: start: 20090915
  18. JODTHYROX [Concomitant]
     Dosage: UNK
     Dates: start: 20100308
  19. ALENDRONAT [Concomitant]
     Dosage: UNK
     Dates: start: 20080902
  20. ALENDRONAT [Concomitant]
     Dosage: UNK
     Dates: start: 20090116
  21. SPIRIVA [Concomitant]
     Indication: RESPIRATORY DISORDER
     Dosage: UNK
     Dates: start: 20080902
  22. SPIRIVA [Concomitant]
     Dosage: UNK
     Dates: start: 20090116
  23. SPIRIVA [Concomitant]
     Dosage: UNK
     Dates: start: 20090518
  24. SPIRIVA [Concomitant]
     Dosage: UNK
     Dates: start: 20090915
  25. SPIRIVA [Concomitant]
     Dosage: UNK
     Dates: start: 20100308
  26. ISOPTIN RR [Concomitant]
     Indication: HYPERTENSION
     Dosage: UNK
     Dates: start: 20090116
  27. ISOPTIN RR [Concomitant]
     Dosage: UNK
     Dates: start: 20090518
  28. ISOPTIN RR [Concomitant]
     Dosage: UNK
     Dates: start: 20090915
  29. ISOPTIN RR [Concomitant]
     Dosage: UNK
     Dates: start: 20100308
  30. FOSAMAX [Concomitant]
     Dosage: UNK
     Dates: start: 20090518
  31. FOSAMAX [Concomitant]
     Dosage: UNK
     Dates: start: 20090915
  32. FOSAMAX [Concomitant]
     Dosage: UNK
     Dates: start: 20100308

REACTIONS (1)
  - Sepsis [Fatal]
